FAERS Safety Report 9265590 (Version 5)
Quarter: 2014Q2

REPORT INFORMATION
  Report Type: Spontaneous
  Country: US (occurrence: US)
  Receive Date: 20130501
  Receipt Date: 20140404
  Transmission Date: 20141212
  Serious: Yes (Hospitalization, Other)
  Sender: FDA-Public Use
  Company Number: US-009507513-1304USA016984

PATIENT
  Sex: Female
  Weight: 72.56 kg

DRUGS (9)
  1. FOSAMAX [Suspect]
     Indication: OSTEOPENIA
     Dosage: 70 MG, QW
     Route: 048
     Dates: start: 20010914, end: 200804
  2. ALENDRONATE SODIUM [Suspect]
     Indication: OSTEOPENIA
     Dosage: 70 MG, QW
     Route: 048
     Dates: start: 200805, end: 201009
  3. ZANTAC [Concomitant]
     Indication: GASTROOESOPHAGEAL REFLUX DISEASE
     Dosage: 300 MG, QD
     Dates: start: 200105
  4. ZANTAC [Concomitant]
     Indication: PROPHYLAXIS
  5. CELEBREX [Concomitant]
     Indication: OSTEOARTHRITIS
     Dosage: 200 MG, QD
     Dates: start: 200504
  6. CALCIUM (UNSPECIFIED) [Concomitant]
     Indication: OSTEOPENIA
     Dosage: 1500 MG, QD
  7. VITAMIN D (UNSPECIFIED) [Concomitant]
     Indication: OSTEOPENIA
  8. PREDNISONE [Concomitant]
     Indication: ANGIOEDEMA
     Dosage: UNK
     Dates: start: 20010516
  9. SINGULAIR [Concomitant]
     Indication: ANGIOEDEMA

REACTIONS (49)
  - Femur fracture [Unknown]
  - Intramedullary rod insertion [Unknown]
  - Internal fixation of fracture [Unknown]
  - Device failure [Unknown]
  - Sleep apnoea syndrome [Unknown]
  - Surgery [Unknown]
  - Surgery [Unknown]
  - Rheumatoid arthritis [Unknown]
  - Herpes simplex [Not Recovered/Not Resolved]
  - Lipids abnormal [Unknown]
  - Hypertension [Unknown]
  - Surgery [Unknown]
  - Fracture nonunion [Unknown]
  - Skin cancer [Unknown]
  - Malignant melanoma [Unknown]
  - Hyponatraemic seizure [Unknown]
  - Fracture delayed union [Unknown]
  - Restless legs syndrome [Unknown]
  - Peripheral vascular disorder [Unknown]
  - Spinal column stenosis [Unknown]
  - Tendon sheath lesion excision [Unknown]
  - Hypertonic bladder [Unknown]
  - Gait disturbance [Unknown]
  - Tonsillectomy [Unknown]
  - Cataract [Unknown]
  - Angina pectoris [Unknown]
  - Urinary tract infection [Unknown]
  - Incontinence [Unknown]
  - Sleep disorder [Unknown]
  - Mitral valve prolapse [Unknown]
  - Atrial flutter [Unknown]
  - Osteoporosis [Unknown]
  - Hypokalaemia [Unknown]
  - Tachycardia [Unknown]
  - Varicella [Unknown]
  - Mumps [Unknown]
  - Measles [Unknown]
  - Migraine [Unknown]
  - Hypercholesterolaemia [Unknown]
  - Insulin resistance [Unknown]
  - Osteoarthritis [Unknown]
  - Blood cholesterol increased [Unknown]
  - Back pain [Unknown]
  - Angioedema [Unknown]
  - Arthralgia [Unknown]
  - Dyspepsia [Unknown]
  - Myalgia [Unknown]
  - Headache [Unknown]
  - Drug ineffective [Unknown]
